FAERS Safety Report 6536419-2 (Version None)
Quarter: 2009Q4

REPORT INFORMATION
  Report Type: 
  Country: None (occurrence: None)
  Receive Date: 20091229
  Receipt Date: 20081120
  Transmission Date: 20100525
  Serious: Yes (Life-Threatening, Hospitalization)
  Sender: FDA-Public Use
  Company Number: WAES 0811USA03742

PATIENT
  Age: 50 Year
  Sex: Male

DRUGS (1)
  1. ZETIA [Suspect]
     Indication: CARDIOVASCULAR DISORDER
     Dosage: 10 MG/DAILY/PO
     Route: 048

REACTIONS (1)
  - RHABDOMYOLYSIS [None]
